FAERS Safety Report 9236963 (Version 2)
Quarter: 2013Q2

REPORT INFORMATION
  Report Type: Spontaneous
  Country: IT (occurrence: None)
  Receive Date: 20130415
  Receipt Date: 20130422
  Transmission Date: 20140414
  Serious: Yes (Hospitalization)
  Sender: FDA-Public Use
  Company Number: AUR-APL-2013-03057

PATIENT
  Age: 86 Year
  Sex: Male

DRUGS (9)
  1. LEVOFLOXACIN [Suspect]
     Indication: PNEUMONITIS
     Route: 048
     Dates: start: 20130316, end: 20130323
  2. COUMADIN [Suspect]
     Indication: MITRAL VALVE REPLACEMENT
     Route: 048
     Dates: start: 20130101, end: 20130323
  3. EUTIROX (LEVOTHYROXINE) [Concomitant]
  4. OMNIC (TAMSULOSIN HYDROCHLORIDE) [Concomitant]
  5. LASIX (FUROSEMIDE) [Concomitant]
  6. TRIATEC (PANADEINE CO) [Concomitant]
  7. LOBIVON (NEBIVOLOL HYDROCHLORIDE) [Concomitant]
  8. LASITONE (OSYROL-LASIX) [Concomitant]
  9. LYRICA (PREGABALIN) [Concomitant]

REACTIONS (3)
  - Hypocoagulable state [None]
  - Drug interaction [None]
  - International normalised ratio increased [None]
